APPROVED DRUG PRODUCT: SOJOURN
Active Ingredient: SEVOFLURANE
Strength: 100%
Dosage Form/Route: LIQUID;INHALATION
Application: A077867 | Product #001 | TE Code: AN
Applicant: PIRAMAL CRITICAL CARE INC
Approved: May 2, 2007 | RLD: No | RS: No | Type: RX